FAERS Safety Report 11414338 (Version 1)
Quarter: 2015Q3

REPORT INFORMATION
  Report Type: Spontaneous
  Country: US (occurrence: US)
  Receive Date: 20150824
  Receipt Date: 20150824
  Transmission Date: 20151125
  Serious: No
  Sender: FDA-Public Use
  Company Number: ALCN2015US005229

PATIENT
  Age: 68 Year
  Sex: Male

DRUGS (1)
  1. PILOCARPINE HCL [Suspect]
     Active Substance: PILOCARPINE HYDROCHLORIDE
     Indication: NARROW ANTERIOR CHAMBER ANGLE
     Dosage: 1 GTT, QHS
     Route: 047
     Dates: start: 2015, end: 20150819

REACTIONS (5)
  - Tongue discolouration [Recovered/Resolved]
  - Glossodynia [Recovered/Resolved]
  - Paraesthesia oral [Recovered/Resolved]
  - Dysgeusia [Recovered/Resolved]
  - Tongue disorder [Recovered/Resolved]
